FAERS Safety Report 21012331 (Version 1)
Quarter: 2022Q2

REPORT INFORMATION
  Report Type: Spontaneous
  Country: PL (occurrence: PL)
  Receive Date: 20220627
  Receipt Date: 20220627
  Transmission Date: 20220721
  Serious: Yes (Life-Threatening, Hospitalization)
  Sender: FDA-Public Use
  Company Number: PL-MENARINI-PL-MEN-082805

PATIENT
  Age: 80 Year
  Sex: Female

DRUGS (28)
  1. SODIUM CHLORIDE [Suspect]
     Active Substance: SODIUM CHLORIDE
     Indication: Product used for unknown indication
     Route: 065
  2. CAPTOPRIL [Suspect]
     Active Substance: CAPTOPRIL
     Route: 065
  3. POTASSIUM CHLORIDE [Suspect]
     Active Substance: POTASSIUM CHLORIDE
     Route: 065
  4. EYLEA [Suspect]
     Active Substance: AFLIBERCEPT
     Indication: Neovascular age-related macular degeneration
     Dates: start: 20220217
  5. ATORVASTATIN CALCIUM [Suspect]
     Active Substance: ATORVASTATIN CALCIUM
     Indication: Product used for unknown indication
     Route: 065
  6. LERCANIDIPINE [Suspect]
     Active Substance: LERCANIDIPINE
     Indication: Hypertension
     Route: 065
     Dates: start: 20211030
  7. PANTOPRAZOLE SODIUM [Suspect]
     Active Substance: PANTOPRAZOLE SODIUM
     Indication: Product used for unknown indication
     Route: 065
  8. ALLOPURINOL [Suspect]
     Active Substance: ALLOPURINOL
     Indication: Hyperuricaemia
     Route: 065
     Dates: start: 2015
  9. HYDROCHLOROTHIAZIDE [Suspect]
     Active Substance: HYDROCHLOROTHIAZIDE
     Indication: Hypertension
     Route: 065
     Dates: start: 20220524
  10. DEXTROSE [Suspect]
     Active Substance: DEXTROSE
     Indication: Product used for unknown indication
     Dosage: 5 %
     Route: 065
  11. ASPIRIN [Suspect]
     Active Substance: ASPIRIN
     Route: 065
  12. QUETIAPINE [Suspect]
     Active Substance: QUETIAPINE
     Indication: Depression
     Route: 065
     Dates: start: 20191209
  13. CALCIUM CHLORIDE\MAGNESIUM CHLORIDE\POTASSIUM CHLORIDE\SODIUM ACETATE\ [Suspect]
     Active Substance: CALCIUM CHLORIDE\MAGNESIUM CHLORIDE\POTASSIUM CHLORIDE\SODIUM ACETATE\SODIUM CHLORIDE\SODIUM CITRATE
     Route: 065
  14. NEBIVOLOL [Suspect]
     Active Substance: NEBIVOLOL
     Indication: Product used for unknown indication
     Route: 065
  15. NITRENDIPINE [Suspect]
     Active Substance: NITRENDIPINE
     Indication: Product used for unknown indication
     Route: 065
  16. CLONIDINE [Suspect]
     Active Substance: CLONIDINE
     Indication: Hypertension
     Route: 065
     Dates: start: 20211030
  17. LIDOCAINE HYDROCHLORIDE [Suspect]
     Active Substance: LIDOCAINE HYDROCHLORIDE
     Indication: Application site anaesthesia
     Route: 065
     Dates: start: 20220217
  18. EUTHYROX [Concomitant]
     Active Substance: LEVOTHYROXINE SODIUM
     Route: 065
     Dates: start: 1971
  19. ALCAINE [Concomitant]
     Active Substance: PROPARACAINE HYDROCHLORIDE
     Route: 065
     Dates: start: 20220217
  20. VIGAMOX [Concomitant]
     Active Substance: MOXIFLOXACIN HYDROCHLORIDE
     Indication: Infection prophylaxis
     Route: 065
     Dates: start: 20220217
  21. ANASTROZOLE [Concomitant]
     Active Substance: ANASTROZOLE
     Route: 065
     Dates: start: 2017
  22. SERTRAGEN [Concomitant]
     Route: 065
     Dates: start: 20220524
  23. MONONITRAT [Concomitant]
     Route: 065
     Dates: start: 20220524
  24. ASPIRIN [Concomitant]
     Active Substance: ASPIRIN
     Route: 065
     Dates: start: 2001
  25. BETADINE [Concomitant]
     Active Substance: POVIDONE-IODINE
     Route: 065
     Dates: start: 20220217
  26. TROPICAMIDE [Concomitant]
     Active Substance: TROPICAMIDE
     Route: 065
     Dates: start: 20220217
  27. CARDURA XL [Concomitant]
     Active Substance: DOXAZOSIN MESYLATE
     Route: 065
     Dates: start: 20211030
  28. CANDEPRES [Concomitant]
     Route: 065
     Dates: start: 20220524

REACTIONS (1)
  - Hyponatraemia [Recovered/Resolved]

NARRATIVE: CASE EVENT DATE: 20220601
